FAERS Safety Report 22532635 (Version 1)
Quarter: 2023Q2

REPORT INFORMATION
  Report Type: Report from Study
  Country: DE (occurrence: DE)
  Receive Date: 20230607
  Receipt Date: 20230607
  Transmission Date: 20230722
  Serious: Yes (Other)
  Sender: FDA-Public Use
  Company Number: DE-002147023-NVSC2020DE275338

PATIENT
  Sex: Male

DRUGS (5)
  1. GILENYA [Suspect]
     Active Substance: FINGOLIMOD HYDROCHLORIDE
     Indication: Multiple sclerosis
     Dosage: 0.5 MG, QD
     Route: 048
     Dates: start: 20180614
  2. DOXEPIN [Suspect]
     Active Substance: DOXEPIN
     Indication: Product used for unknown indication
     Route: 065
  3. TIANEPTINE [Concomitant]
     Active Substance: TIANEPTINE
     Indication: Depression
     Dosage: 12.5 MG
     Route: 065
     Dates: start: 20150815
  4. PANTOPRAZOLE [Concomitant]
     Active Substance: PANTOPRAZOLE
     Indication: Prophylaxis
     Dosage: 20 MG
     Route: 065
     Dates: start: 20180628, end: 20180630
  5. PREDNISOLONE [Concomitant]
     Active Substance: PREDNISOLONE
     Indication: Multiple sclerosis relapse
     Dosage: 2000 MG
     Route: 065
     Dates: start: 20180628, end: 20180630

REACTIONS (2)
  - Angioedema [Recovered/Resolved]
  - Hypersensitivity [Recovered/Resolved]

NARRATIVE: CASE EVENT DATE: 20181227
